FAERS Safety Report 7650771-6 (Version None)
Quarter: 2011Q3

REPORT INFORMATION
  Report Type: 
  Country: None (occurrence: None)
  Receive Date: 20110802
  Receipt Date: 20110728
  Transmission Date: 20111222
  Serious: Yes (Other)
  Sender: FDA-Public Use
  Company Number: US-PFIZER INC-2008098647

PATIENT
  Sex: Female
  Weight: 86.2 kg

DRUGS (2)
  1. DILANTIN [Suspect]
     Indication: CONVULSION
     Dosage: 400MG PER DAY
  2. ASPARTAME [Suspect]
     Dosage: UNK

REACTIONS (8)
  - MEMORY IMPAIRMENT [None]
  - CONVULSION [None]
  - DRUG DEPENDENCE [None]
  - ABDOMINAL PAIN [None]
  - MOOD ALTERED [None]
  - BALANCE DISORDER [None]
  - SUICIDAL IDEATION [None]
  - EPILEPTIC AURA [None]
